FAERS Safety Report 8473925-8 (Version None)
Quarter: 2012Q2

REPORT INFORMATION
  Report Type: 
  Country: None (occurrence: None)
  Receive Date: 20120628
  Receipt Date: 20120409
  Transmission Date: 20120825
  Serious: Yes (Death)
  Sender: FDA-Public Use
  Company Number: US-MYLANLABS-2012S1002718

PATIENT
  Age: 54 Year
  Sex: Male

DRUGS (7)
  1. CLOZAPINE [Suspect]
     Indication: SCHIZOAFFECTIVE DISORDER
     Route: 048
     Dates: start: 20110919, end: 20120210
  2. TRAZODONE HCL [Concomitant]
  3. KLONOPIN [Concomitant]
  4. CLOZAPINE [Suspect]
     Route: 048
     Dates: start: 20110919, end: 20120210
  5. WELLBUTRIN XL [Concomitant]
  6. CELEXA [Concomitant]
  7. HALDOL [Concomitant]
     Route: 030

REACTIONS (3)
  - LEUKOPENIA [None]
  - MYOCARDIAL INFARCTION [None]
  - GRANULOCYTOPENIA [None]
